FAERS Safety Report 16644387 (Version 1)
Quarter: 2019Q3

REPORT INFORMATION
  Report Type: Spontaneous
  Country: FR (occurrence: FR)
  Receive Date: 20190729
  Receipt Date: 20190729
  Transmission Date: 20191004
  Serious: Yes (Hospitalization)
  Sender: FDA-Public Use
  Company Number: PHHY2019FR174519

PATIENT
  Age: 69 Year
  Sex: Female

DRUGS (8)
  1. BETADINE [Suspect]
     Active Substance: POVIDONE-IODINE
     Indication: PREOPERATIVE CARE
     Route: 047
  2. DEXAFREE [Suspect]
     Active Substance: DEXAMETHASONE SODIUM PHOSPHATE
     Indication: POSTOPERATIVE CARE
     Route: 047
  3. CILOXAN [Suspect]
     Active Substance: CIPROFLOXACIN HYDROCHLORIDE
     Indication: POSTOPERATIVE CARE
     Route: 065
  4. PROPOFOL. [Suspect]
     Active Substance: PROPOFOL
     Indication: SEDATIVE THERAPY
     Route: 042
  5. DIAMOX SEQUELS [Suspect]
     Active Substance: ACETAZOLAMIDE
     Indication: INTRAOCULAR PRESSURE INCREASED
     Dosage: 1 DF, UNK (TOTAL)
     Route: 048
     Dates: start: 20190117, end: 20190117
  6. APROKAM [Suspect]
     Active Substance: CEFUROXIME SODIUM
     Indication: ANTIBIOTIC PROPHYLAXIS
     Route: 031
  7. CARBOCAINE [Suspect]
     Active Substance: MEPIVACAINE HYDROCHLORIDE
     Indication: ANAESTHESIA
     Dosage: 1 DF, UNK (TOTAL)
     Route: 050
     Dates: start: 20190117, end: 20190117
  8. ACULAR [Suspect]
     Active Substance: KETOROLAC TROMETHAMINE
     Indication: CATARACT OPERATION COMPLICATION
     Route: 047

REACTIONS (3)
  - Rash erythematous [Recovered/Resolved]
  - Rash papular [Recovered/Resolved]
  - Skin exfoliation [Recovered/Resolved]

NARRATIVE: CASE EVENT DATE: 20190117
